FAERS Safety Report 10509457 (Version 1)
Quarter: 2014Q4

REPORT INFORMATION
  Report Type: Spontaneous
  Country: GB (occurrence: GB)
  Receive Date: 20141009
  Receipt Date: 20141009
  Transmission Date: 20150528
  Serious: Yes (Other)
  Sender: FDA-Public Use
  Company Number: PHFR2014GB006771

PATIENT
  Age: 26 Year
  Sex: Male

DRUGS (1)
  1. CLOZARIL [Suspect]
     Active Substance: CLOZAPINE
     Indication: SCHIZOPHRENIA
     Dosage: UKN
     Route: 048
     Dates: start: 20120801

REACTIONS (4)
  - Hyperhidrosis [Unknown]
  - Haemoptysis [Unknown]
  - Nasopharyngitis [Unknown]
  - Body temperature increased [Unknown]

NARRATIVE: CASE EVENT DATE: 20141001
